FAERS Safety Report 8795540 (Version 1)
Quarter: 2012Q4

REPORT INFORMATION
  Report Type: 
  Country: US (occurrence: US)
  Receive Date: 20120917
  Receipt Date: 20120917
  Transmission Date: 20130627
  Serious: No
  Sender: FDA-Public Use
  Company Number: US-ASTRAZENECA-2012SE65932

PATIENT
  Age: 32 Year
  Sex: Female
  Weight: 95.7 kg

DRUGS (6)
  1. SEROQUEL XR [Suspect]
     Indication: DEPRESSION
     Route: 048
  2. METFORMIN [Concomitant]
  3. GABAPENTIN [Concomitant]
  4. MELOXICAM [Concomitant]
  5. CITALOPRAM [Concomitant]
  6. PERCOCET [Concomitant]
     Indication: PAIN

REACTIONS (1)
  - Procedural pain [Unknown]
